FAERS Safety Report 18937813 (Version 3)
Quarter: 2021Q3

REPORT INFORMATION
  Report Type: Report from Study
  Country: US (occurrence: US)
  Receive Date: 20210224
  Receipt Date: 20210910
  Transmission Date: 20211014
  Serious: No
  Sender: FDA-Public Use
  Company Number: NVSC2021US036802

PATIENT
  Age: 33 Year
  Sex: Female

DRUGS (1)
  1. KESIMPTA [Suspect]
     Active Substance: OFATUMUMAB
     Indication: MULTIPLE SCLEROSIS
     Dosage: 20 MG (BENEATH THE SKIN, USUALLY VIA INJECTION)
     Route: 058
     Dates: start: 20210207

REACTIONS (3)
  - Influenza like illness [Unknown]
  - Headache [Unknown]
  - Myalgia [Unknown]

NARRATIVE: CASE EVENT DATE: 20210207
